FAERS Safety Report 7226837-1 (Version None)
Quarter: 2011Q1

REPORT INFORMATION
  Report Type: 
  Country: None (occurrence: None)
  Receive Date: 20110114
  Receipt Date: 20110106
  Transmission Date: 20110831
  Serious: Yes (Hospitalization, Other)
  Sender: FDA-Public Use
  Company Number: PHHO2011US00741

PATIENT
  Sex: Male
  Weight: 89 kg

DRUGS (3)
  1. AFINITOR [Suspect]
     Indication: PROSTATE CANCER METASTATIC
     Dosage: 5 MG, QD
     Route: 048
     Dates: start: 20100325, end: 20110104
  2. CARBOPLATIN [Suspect]
     Indication: PROSTATE CANCER METASTATIC
     Dosage: AUC OF 4 EVERY 3 WEEKS
     Route: 042
  3. PREDNISONE [Concomitant]

REACTIONS (5)
  - PULMONARY OEDEMA [None]
  - DIARRHOEA [None]
  - PNEUMONIA [None]
  - ANAEMIA [None]
  - DEHYDRATION [None]
